FAERS Safety Report 6900036-2 (Version None)
Quarter: 2010Q3

REPORT INFORMATION
  Report Type: 
  Country: None (occurrence: None)
  Receive Date: 20100803
  Receipt Date: 20100721
  Transmission Date: 20110219
  Serious: Yes (Hospitalization)
  Sender: FDA-Public Use
  Company Number: US-JNJFOC-20100702020

PATIENT
  Sex: Male
  Weight: 40.6 kg

DRUGS (7)
  1. REMICADE [Suspect]
     Indication: CROHN'S DISEASE
     Route: 042
  2. REMICADE [Suspect]
     Route: 042
  3. REMICADE [Suspect]
     Route: 042
  4. CIMZIA [Concomitant]
  5. ANTIHISTAMINES [Concomitant]
  6. CORTICOSTEROIDS [Concomitant]
  7. ACETAMINOPHEN [Concomitant]

REACTIONS (2)
  - HYPOALBUMINAEMIA [None]
  - SMALL INTESTINAL OBSTRUCTION [None]
